FAERS Safety Report 9756622 (Version 2)
Quarter: 2013Q4

REPORT INFORMATION
  Report Type: Spontaneous
  Country: US (occurrence: US)
  Receive Date: 20131213
  Receipt Date: 20131223
  Transmission Date: 20140711
  Serious: No
  Sender: FDA-Public Use
  Company Number: US-TEVA-449480USA

PATIENT
  Age: 83 Year
  Sex: Female
  Weight: 41.77 kg

DRUGS (2)
  1. PROAIR HFA [Suspect]
     Indication: PRODUCT USED FOR UNKNOWN INDICATION
  2. METOPROLOL [Concomitant]

REACTIONS (1)
  - Drug effect decreased [Unknown]
